FAERS Safety Report 12739030 (Version 1)
Quarter: 2016Q3

REPORT INFORMATION
  Report Type: Spontaneous
  Country: ES (occurrence: ES)
  Receive Date: 20160912
  Receipt Date: 20160912
  Transmission Date: 20161109
  Serious: Yes (Other)
  Sender: FDA-Public Use
  Company Number: ES-SEBELA IRELAND LIMITED-2016SEB01462

PATIENT
  Age: 33 Year
  Sex: Female

DRUGS (2)
  1. AZATHIOPRINE. [Suspect]
     Active Substance: AZATHIOPRINE
     Indication: COLITIS ULCERATIVE
     Dosage: 100 MG, EVERY 24 HOURS
     Route: 065
  2. MESALAZINE [Concomitant]
     Active Substance: MESALAMINE
     Indication: COLITIS ULCERATIVE
     Route: 065

REACTIONS (3)
  - Retinal detachment [Recovered/Resolved]
  - Eye infection toxoplasmal [Recovered/Resolved]
  - Blindness [Recovered/Resolved]
